FAERS Safety Report 10072460 (Version 1)
Quarter: 2014Q2

REPORT INFORMATION
  Report Type: Spontaneous
  Country: DE (occurrence: DE)
  Receive Date: 20140411
  Receipt Date: 20140411
  Transmission Date: 20141212
  Serious: Yes (Other)
  Sender: FDA-Public Use
  Company Number: DE-JNJFOC-20140400383

PATIENT
  Age: 41 Year
  Sex: Male
  Weight: 70 kg

DRUGS (3)
  1. RISPERDAL [Suspect]
     Indication: PRODUCT USED FOR UNKNOWN INDICATION
     Dosage: UNKNOWN IF COMPLETE DOSE WAS TAKEN
     Route: 048
     Dates: start: 20140331, end: 20140331
  2. ZOPICLON [Suspect]
     Indication: PRODUCT USED FOR UNKNOWN INDICATION
     Dosage: UNKNOWN IF COMPLETE DOSE WAS TAKEN
     Route: 048
     Dates: start: 20140331, end: 20140331
  3. TRUXAL [Suspect]
     Indication: PRODUCT USED FOR UNKNOWN INDICATION
     Dosage: UNKNOWN IF COMPLETE DOSE WAS TAKEN
     Route: 048
     Dates: start: 20140331, end: 20140331

REACTIONS (6)
  - Suicide attempt [Unknown]
  - Electrocardiogram QT prolonged [Unknown]
  - Tachycardia [Unknown]
  - Systolic hypertension [Unknown]
  - Vomiting [Unknown]
  - Somnolence [Unknown]
